FAERS Safety Report 17433164 (Version 1)
Quarter: 2020Q1

REPORT INFORMATION
  Report Type: Report from Study
  Country: US (occurrence: US)
  Receive Date: 20200219
  Receipt Date: 20200219
  Transmission Date: 20200409
  Serious: Yes (Hospitalization, Other)
  Sender: FDA-Public Use
  Company Number: US-BRISTOL-MYERS SQUIBB COMPANY-BMS-2020-006231

PATIENT
  Age: 51 Year
  Sex: Male
  Weight: 92.6 kg

DRUGS (3)
  1. IPILIMUMAB [Suspect]
     Active Substance: IPILIMUMAB
     Indication: RENAL CELL CARCINOMA
     Dosage: 96 MILLIGRAM
     Route: 065
     Dates: start: 20191209, end: 20191230
  2. NIVOLUMAB [Suspect]
     Active Substance: NIVOLUMAB
     Indication: RENAL CELL CARCINOMA
     Dosage: 288 MILLIGRAM
     Route: 065
     Dates: start: 20191209, end: 20191230
  3. CABOZANTINIB [Suspect]
     Active Substance: CABOZANTINIB
     Indication: RENAL CELL CARCINOMA
     Dosage: 520 MILLIGRAM
     Route: 065
     Dates: start: 20191209, end: 20200112

REACTIONS (2)
  - Hyperthyroidism [Unknown]
  - Neutrophil count decreased [Recovered/Resolved]

NARRATIVE: CASE EVENT DATE: 20200113
